FAERS Safety Report 21078607 (Version 4)
Quarter: 2022Q3

REPORT INFORMATION
  Report Type: Report from Study
  Country: CA (occurrence: CA)
  Receive Date: 20220713
  Receipt Date: 20220815
  Transmission Date: 20221027
  Serious: Yes (Hospitalization)
  Sender: FDA-Public Use
  Company Number: CA-SEATTLE GENETICS-2022SGN06388

PATIENT
  Age: 38 Year
  Sex: Female
  Weight: 86.5 kg

DRUGS (13)
  1. TISOTUMAB VEDOTIN [Suspect]
     Active Substance: TISOTUMAB VEDOTIN
     Indication: Cervix carcinoma recurrent
     Dosage: 2.0 MG/KG, Q21D
     Route: 042
     Dates: start: 20220628
  2. COLCHICINE [Concomitant]
     Active Substance: COLCHICINE
     Indication: Pericarditis
     Dosage: 0.6 MG, BID
     Route: 048
     Dates: start: 20220620
  3. IBUPROFEN [Concomitant]
     Active Substance: IBUPROFEN
     Indication: Pericarditis
     Dosage: 600 MG, TID
     Route: 048
     Dates: start: 20220622
  4. PANTOPRAZOLE [Concomitant]
     Active Substance: PANTOPRAZOLE
     Indication: Prophylaxis against gastrointestinal ulcer
     Dosage: 40 MG, BID
     Route: 048
     Dates: start: 20220620
  5. APIXABAN [Concomitant]
     Active Substance: APIXABAN
     Indication: Pulmonary embolism
     Dosage: 5 MG, BID
     Route: 048
     Dates: start: 20220512
  6. LORAZEPAM [Concomitant]
     Active Substance: LORAZEPAM
     Indication: Anxiety
     Dosage: 0.5 MG, BID, PRN
     Route: 048
     Dates: start: 20220521
  7. ESTRADIOL [Concomitant]
     Active Substance: ESTRADIOL
     Indication: Supplementation therapy
     Dosage: 1 MG
     Route: 048
     Dates: start: 20190601
  8. PROGESTERONE [Concomitant]
     Active Substance: PROGESTERONE
     Indication: Supplementation therapy
     Dosage: 100 MG
     Route: 048
     Dates: start: 20190601
  9. POLYETHYLENE GLYCOL 3350 [Concomitant]
     Active Substance: POLYETHYLENE GLYCOL 3350
     Indication: Prophylaxis
     Dosage: HALF CAPFUL IN WATER
     Route: 048
     Dates: start: 20220609
  10. IMODIUM [Concomitant]
     Active Substance: LOPERAMIDE HYDROCHLORIDE
     Indication: Prophylaxis against diarrhoea
     Dosage: 2 MG, PRN
     Route: 048
     Dates: start: 20220609
  11. DEXAMETHASONE [Concomitant]
     Active Substance: DEXAMETHASONE
     Indication: Prophylaxis
     Dosage: 0.1 % TO BOTH EYES TIDX 4DAUS FOR EAXH CYCLE
     Route: 047
     Dates: start: 20220627
  12. BRIMONIDINE TARTRATE [Concomitant]
     Active Substance: BRIMONIDINE TARTRATE
     Indication: Prophylaxis
     Dosage: 0.2 % 3 DROPS TO EACH EYE ON DAY OF TREATMENT
     Route: 047
     Dates: start: 20220628
  13. THERATEARS [Concomitant]
     Active Substance: CARBOXYMETHYLCELLULOSE SODIUM
     Indication: Prophylaxis
     Dosage: 1 DROP TO EACH EYE DAIY
     Route: 047
     Dates: start: 20220630

REACTIONS (2)
  - Proctitis [Recovered/Resolved]
  - Neutrophil count decreased [Recovered/Resolved]

NARRATIVE: CASE EVENT DATE: 20220704
